FAERS Safety Report 10376061 (Version 2)
Quarter: 2014Q3

REPORT INFORMATION
  Report Type: Spontaneous
  Country: FR (occurrence: FR)
  Receive Date: 20140811
  Receipt Date: 20140811
  Transmission Date: 20150326
  Serious: Yes (Hospitalization, Other)
  Sender: FDA-Public Use
  Company Number: FR-BRISTOL-MYERS SQUIBB COMPANY-21105168

PATIENT
  Age: 66 Year
  Sex: Male

DRUGS (4)
  1. SERESTA [Concomitant]
     Active Substance: OXAZEPAM
  2. INEXIUM [Concomitant]
     Active Substance: ESOMEPRAZOLE
  3. KEPPRA [Concomitant]
     Active Substance: LEVETIRACETAM
  4. COUMADIN [Suspect]
     Active Substance: WARFARIN SODIUM
     Indication: DEEP VEIN THROMBOSIS
     Route: 048
     Dates: start: 2012, end: 20140605

REACTIONS (5)
  - Fall [Unknown]
  - Petechiae [Unknown]
  - Intracranial haematoma [Recovering/Resolving]
  - Cerebral haematoma [Recovering/Resolving]
  - Contusion [Unknown]

NARRATIVE: CASE EVENT DATE: 20140605
